FAERS Safety Report 24348339 (Version 1)
Quarter: 2024Q3

REPORT INFORMATION
  Report Type: Spontaneous
  Country: FI (occurrence: FI)
  Receive Date: 20240923
  Receipt Date: 20240923
  Transmission Date: 20241016
  Serious: Yes (Hospitalization)
  Sender: CHEPLAPHARM
  Company Number: None

PATIENT
  Age: 38 Year
  Sex: Male

DRUGS (3)
  1. OLANZAPINE PAMOATE [Suspect]
     Active Substance: OLANZAPINE PAMOATE
     Indication: Psychiatric disorder prophylaxis
     Dosage: 405 MG EVERY 3 WEEKS
     Route: 030
     Dates: start: 202206, end: 202304
  2. QUETIAPINE [Concomitant]
     Active Substance: QUETIAPINE
  3. NALTREXONE [Concomitant]
     Active Substance: NALTREXONE

REACTIONS (4)
  - Pyrexia [Recovered/Resolved]
  - Staphylococcal abscess [Recovered/Resolved]
  - Injection site pain [Recovered/Resolved]
  - Injection site abscess [Recovered/Resolved]

NARRATIVE: CASE EVENT DATE: 20230328
